FAERS Safety Report 9441470 (Version 1)
Quarter: 2013Q3

REPORT INFORMATION
  Report Type: Spontaneous
  Country: US (occurrence: US)
  Receive Date: 20130805
  Receipt Date: 20130805
  Transmission Date: 20140515
  Serious: Yes (Other)
  Sender: FDA-Public Use
  Company Number: CHPA2013US012194

PATIENT
  Age: 74 Year
  Sex: Female

DRUGS (1)
  1. VOLTAREN GEL [Suspect]
     Indication: ARTHRALGIA
     Dosage: UNK,UNK
     Route: 061
     Dates: start: 201210

REACTIONS (3)
  - Meniscus injury [Unknown]
  - Skin sensitisation [Unknown]
  - Drug ineffective for unapproved indication [Unknown]
